FAERS Safety Report 18822092 (Version 1)
Quarter: 2021Q1

REPORT INFORMATION
  Report Type: Spontaneous
  Country: US (occurrence: US)
  Receive Date: 20210202
  Receipt Date: 20210202
  Transmission Date: 20210419
  Serious: Yes (Other)
  Sender: FDA-Public Use
  Company Number: US-SUN PHARMACEUTICAL INDUSTRIES LTD-2021R1-276908

PATIENT
  Sex: Female

DRUGS (10)
  1. ERYTHROMYCIN. [Suspect]
     Active Substance: ERYTHROMYCIN
     Indication: PRETERM PREMATURE RUPTURE OF MEMBRANES
     Dosage: 250 GRAM, QID
     Route: 064
  2. CEFOXITIN [Suspect]
     Active Substance: CEFOXITIN SODIUM
     Indication: PRODUCT USED FOR UNKNOWN INDICATION
     Dosage: UNK
     Route: 064
  3. TERBUTALINE [Suspect]
     Active Substance: TERBUTALINE
     Indication: PRODUCT USED FOR UNKNOWN INDICATION
     Dosage: UNK
     Route: 064
  4. AMPICILLIN [Suspect]
     Active Substance: AMPICILLIN
     Indication: PRETERM PREMATURE RUPTURE OF MEMBRANES
     Dosage: 2 GRAM, QID
     Route: 064
  5. NIFEDIPINE. [Suspect]
     Active Substance: NIFEDIPINE
     Indication: TOCOLYSIS
     Dosage: 20 MILLIGRAM, QID
     Route: 064
  6. INDOMETHACIN. [Suspect]
     Active Substance: INDOMETHACIN
     Indication: ANTIBIOTIC THERAPY
     Dosage: 50 MILLIGRAM, QID
     Route: 064
  7. INDOMETHACIN. [Suspect]
     Active Substance: INDOMETHACIN
     Dosage: 25, MILLIGRAM, QID
     Route: 064
  8. CLINDAMYCIN. [Suspect]
     Active Substance: CLINDAMYCIN
     Indication: DRUG THERAPY
     Dosage: 900 MILLIGRAM, QID
     Route: 064
  9. CLINDAMYCIN. [Suspect]
     Active Substance: CLINDAMYCIN
     Indication: DRUG THERAPY
     Dosage: 600 MILLIGRAM, BID
     Route: 064
  10. MAGNESIUM SULFATE. [Suspect]
     Active Substance: MAGNESIUM SULFATE
     Indication: NERVOUS SYSTEM DISORDER
     Dosage: UNK
     Route: 064

REACTIONS (3)
  - Low birth weight baby [Unknown]
  - Premature baby [Unknown]
  - Foetal exposure during pregnancy [Unknown]
